FAERS Safety Report 10048945 (Version 1)
Quarter: 2014Q1

REPORT INFORMATION
  Report Type: Spontaneous
  Country: DE (occurrence: DE)
  Receive Date: 20140331
  Receipt Date: 20140331
  Transmission Date: 20141002
  Serious: Yes (Life-Threatening)
  Sender: FDA-Public Use
  Company Number: DE-WATSON-2013-25065

PATIENT
  Age: 71 Year
  Sex: Female
  Weight: 62 kg

DRUGS (1)
  1. ENALAPRIL (UNKNOWN) [Suspect]
     Indication: HYPERTENSION
     Route: 065
     Dates: start: 2003, end: 20130902

REACTIONS (4)
  - Dyspnoea [Recovered/Resolved]
  - Lip swelling [Recovered/Resolved]
  - Local swelling [Recovered/Resolved]
  - Swollen tongue [Recovered/Resolved]
